FAERS Safety Report 21461259 (Version 1)
Quarter: 2022Q4

REPORT INFORMATION
  Report Type: Report from Study
  Country: US (occurrence: US)
  Receive Date: 20221015
  Receipt Date: 20221015
  Transmission Date: 20230112
  Serious: No
  Sender: FDA-Public Use
  Company Number: US-ABBVIE-4131020

PATIENT
  Sex: Female

DRUGS (1)
  1. VENCLEXTA [Suspect]
     Active Substance: VENETOCLAX
     Indication: Diabetes insipidus
     Dosage: FORM STRENGTH: 100 MILLIGRAM?TAKE 4 TABLET(S) BY MOUTH (400MG TOTAL) DAILY . TAKE WHOLE WITH WATE...
     Route: 048

REACTIONS (3)
  - Full blood count abnormal [Unknown]
  - Malaise [Unknown]
  - Drug hypersensitivity [Unknown]
